FAERS Safety Report 9338977 (Version 2)
Quarter: 2013Q2

REPORT INFORMATION
  Report Type: Report from Study
  Country: CA (occurrence: CA)
  Receive Date: 20130610
  Receipt Date: 20130626
  Transmission Date: 20140414
  Serious: Yes (Hospitalization)
  Sender: FDA-Public Use
  Company Number: CA-SANOFI-AVENTIS-2013SA018008

PATIENT
  Age: 72 Year
  Sex: Male

DRUGS (10)
  1. DOCETAXEL [Suspect]
     Indication: TRANSITIONAL CELL CANCER OF THE RENAL PELVIS AND URETER
     Route: 042
     Dates: start: 20121005
  2. DOCETAXEL [Suspect]
     Indication: TRANSITIONAL CELL CANCER OF THE RENAL PELVIS AND URETER
     Route: 042
     Dates: start: 20121016
  3. INVESTIGATIONAL DRUG [Suspect]
     Indication: TRANSITIONAL CELL CANCER OF THE RENAL PELVIS AND URETER
     Dosage: FORM: LIQUID
     Route: 042
     Dates: start: 20121005
  4. COVERSYL [Concomitant]
     Dates: start: 2008
  5. BISOPROLOL [Concomitant]
     Dates: start: 20121120
  6. ASA [Concomitant]
     Dates: start: 1997
  7. VITAMIN B12 [Concomitant]
     Dates: start: 2007
  8. CALCIUM [Concomitant]
     Dates: start: 2002
  9. VITAMIN D [Concomitant]
     Dates: start: 2002
  10. VITAMIN C [Concomitant]
     Dates: start: 1990

REACTIONS (4)
  - Pneumonia [Recovering/Resolving]
  - Eye infection staphylococcal [Recovered/Resolved]
  - Febrile neutropenia [Recovered/Resolved]
  - Sepsis [Recovered/Resolved]
